FAERS Safety Report 14371856 (Version 1)
Quarter: 2018Q1

REPORT INFORMATION
  Report Type: Spontaneous
  Country: IT (occurrence: IT)
  Receive Date: 20180110
  Receipt Date: 20180110
  Transmission Date: 20180509
  Serious: Yes (Death, Other)
  Sender: FDA-Public Use
  Company Number: IT-MYLANLABS-2018M1002090

PATIENT

DRUGS (1)
  1. URSODEOXYCHOLIC ACID [Suspect]
     Active Substance: URSODIOL
     Indication: PRODUCT USED FOR UNKNOWN INDICATION

REACTIONS (6)
  - Biliary colic [Fatal]
  - Bile duct stone [Fatal]
  - Cholangiocarcinoma [Fatal]
  - Pancreatitis [Fatal]
  - Disease recurrence [Fatal]
  - Cholangitis [Fatal]
